FAERS Safety Report 7116280-8 (Version None)
Quarter: 2010Q4

REPORT INFORMATION
  Report Type: 
  Country: None (occurrence: None)
  Receive Date: 20101122
  Receipt Date: 20101112
  Transmission Date: 20110411
  Serious: Yes (Hospitalization)
  Sender: FDA-Public Use
  Company Number: US-ASTRAZENECA-2010SE54228

PATIENT
  Age: 26 Year
  Sex: Female

DRUGS (3)
  1. SEROQUEL [Suspect]
     Route: 048
     Dates: start: 20101111
  2. TRILEPTAL [Concomitant]
  3. RISPERDAL [Concomitant]

REACTIONS (3)
  - BLOOD PRESSURE ABNORMAL [None]
  - CONFUSIONAL STATE [None]
  - DIZZINESS [None]
